FAERS Safety Report 10623616 (Version 1)
Quarter: 2014Q4

REPORT INFORMATION
  Report Type: Spontaneous
  Country: JP (occurrence: JP)
  Receive Date: 20141203
  Receipt Date: 20141203
  Transmission Date: 20150529
  Serious: Yes (Hospitalization)
  Sender: FDA-Public Use
  Company Number: PHHY2014JP154863

PATIENT
  Age: 61 Year
  Sex: Female

DRUGS (2)
  1. METHOTREXATE [Suspect]
     Active Substance: METHOTREXATE
     Indication: RHEUMATOID ARTHRITIS
     Dosage: 8-10 MG, QW
     Route: 065
  2. PREDNISOLONE. [Concomitant]
     Active Substance: PREDNISOLONE
     Indication: RHEUMATOID ARTHRITIS
     Dosage: 2.5 MG, QD
     Route: 065

REACTIONS (7)
  - Lung infiltration [Recovering/Resolving]
  - Neutrophilia [Recovering/Resolving]
  - Cough [Recovering/Resolving]
  - Pneumonitis [Recovering/Resolving]
  - Pyrexia [Recovering/Resolving]
  - Dyspnoea exertional [Recovering/Resolving]
  - Interstitial lung disease [Recovering/Resolving]
